FAERS Safety Report 22534818 (Version 1)
Quarter: 2023Q2

REPORT INFORMATION
  Report Type: Spontaneous
  Country: CA (occurrence: CA)
  Receive Date: 20230608
  Receipt Date: 20230608
  Transmission Date: 20230722
  Serious: Yes (Other)
  Sender: FDA-Public Use
  Company Number: None

PATIENT
  Age: 22 Year
  Sex: Female

DRUGS (1)
  1. MONOFERRIC [Suspect]
     Active Substance: FERRIC DERISOMALTOSE
     Indication: Anaemia
     Route: 050

REACTIONS (6)
  - Abdominal pain [Unknown]
  - Back pain [Unknown]
  - Blood urine present [Unknown]
  - Dyspnoea [Unknown]
  - Hot flush [Unknown]
  - Malaise [Unknown]
